FAERS Safety Report 5065379-9 (Version None)
Quarter: 2006Q3

REPORT INFORMATION
  Report Type: 
  Country: None (occurrence: None)
  Receive Date: 20060725
  Receipt Date: 20060712
  Transmission Date: 20061208
  Serious: Yes (Hospitalization)
  Sender: FDA-Public Use
  Company Number: 2006087039

PATIENT
  Age: 25 Year
  Sex: Female
  Weight: 45 kg

DRUGS (5)
  1. SILDENAFIL CITRATE [Suspect]
     Indication: PULMONARY HYPERTENSION
     Dosage: 75 MG (25 MG, 3 IN 1 D) ORAL
     Route: 048
     Dates: start: 20040107
  2. WARFARIN SODIUM [Concomitant]
  3. OXYGEN [Concomitant]
  4. PERDIPINE-LA (NICARDIPINE HYDROCHLORIDE) [Concomitant]
  5. TRACLEER [Concomitant]

REACTIONS (1)
  - CARDIAC FAILURE [None]
